FAERS Safety Report 5854651-8 (Version None)
Quarter: 2008Q3

REPORT INFORMATION
  Report Type: 
  Country: None (occurrence: None)
  Receive Date: 20080822
  Receipt Date: 20071114
  Transmission Date: 20090109
  Serious: No
  Sender: FDA-Public Use
  Company Number: US-ABBOTT-07P-163-0425152-00

PATIENT
  Sex: Female
  Weight: 64.922 kg

DRUGS (4)
  1. SYNTHROID [Suspect]
     Indication: HYPOTHYROIDISM
     Route: 048
     Dates: start: 20070505, end: 20070701
  2. SYNTHROID [Suspect]
     Route: 048
     Dates: start: 20070701
  3. LIOTHYRONINE SODIUM [Suspect]
     Indication: TRI-IODOTHYRONINE DECREASED
     Route: 048
     Dates: start: 20070717
  4. ESTRADIOL INJ [Suspect]
     Indication: OESTROGEN REPLACEMENT THERAPY
     Dates: start: 20070801, end: 20070901

REACTIONS (7)
  - ALOPECIA [None]
  - GINGIVAL INFECTION [None]
  - HEADACHE [None]
  - HERPES SIMPLEX [None]
  - HYPERTHYROIDISM [None]
  - RASH [None]
  - WEIGHT INCREASED [None]
